FAERS Safety Report 8322160-2 (Version None)
Quarter: 2012Q2

REPORT INFORMATION
  Report Type: 
  Country: None (occurrence: None)
  Receive Date: 20120430
  Receipt Date: 20100204
  Transmission Date: 20120825
  Serious: No
  Sender: FDA-Public Use
  Company Number: US-TEVA-2010000047

PATIENT
  Sex: Female
  Weight: 72.64 kg

DRUGS (6)
  1. NUVIGIL [Suspect]
     Indication: FATIGUE
     Dosage: 150 MILLIGRAM;
     Route: 048
     Dates: start: 20091214, end: 20091224
  2. BETASERON [Concomitant]
     Dates: start: 19990101
  3. LABETALOL HCL [Concomitant]
     Dates: start: 20060801
  4. BACLOFEN [Concomitant]
  5. TYLENOL (CAPLET) [Concomitant]
  6. HYDROCHLOROTHIAZIDE [Concomitant]
     Dates: start: 20060801

REACTIONS (2)
  - FEELING ABNORMAL [None]
  - FATIGUE [None]
